FAERS Safety Report 8031072-3 (Version None)
Quarter: 2012Q1

REPORT INFORMATION
  Report Type: 
  Country: None (occurrence: None)
  Receive Date: 20120109
  Receipt Date: 20111228
  Transmission Date: 20120608
  Serious: Yes (Death, Life-Threatening, Hospitalization, Other)
  Sender: FDA-Public Use
  Company Number: JP-PFIZER INC-2011242818

PATIENT
  Age: 84 Year
  Sex: Female
  Weight: 29.9 kg

DRUGS (1)
  1. CELECOXIB [Suspect]
     Indication: ARTHRITIS
     Dosage: 200 MG, DAILY
     Route: 048
     Dates: start: 20110518

REACTIONS (4)
  - ANGINA PECTORIS [None]
  - CEREBRAL INFARCTION [None]
  - INTERSTITIAL LUNG DISEASE [None]
  - PNEUMONIA ASPIRATION [None]
